FAERS Safety Report 6352162 (Version 23)
Quarter: 2014Q2

REPORT INFORMATION
  Report Type: Spontaneous
  Country: US (occurrence: US)
  Receive Date: 20070709
  Receipt Date: 20140630
  Transmission Date: 20141212
  Serious: Yes (Other)
  Sender: FDA-Public Use
  Company Number: PHEH2007US09509

PATIENT
  Age: 62 Year
  Sex: Female
  Weight: 41.27 kg

DRUGS (29)
  1. AREDIA [Suspect]
     Indication: BREAST CANCER
     Dosage: 90 MG, QMO
     Route: 042
     Dates: start: 199910, end: 200308
  2. ZOMETA [Suspect]
  3. FOSAMAX [Suspect]
     Indication: OSTEOPENIA
     Dosage: 10 MG, QD
     Dates: start: 1996, end: 1999
  4. DUROGESIC [Concomitant]
     Dosage: 50 UG, Q72H
  5. LEVOXYL [Concomitant]
     Dosage: 0.025 MG, QD
     Route: 048
  6. CLONAZEPAM [Concomitant]
     Dosage: 2 MG, TID PRN
  7. PROVENTIL [Concomitant]
     Indication: DYSPNOEA
  8. FIORICET [Concomitant]
     Indication: PAIN
     Route: 048
  9. EPIPEN [Concomitant]
     Indication: ARTHROPOD STING
     Dosage: 0.3 MG, PRN
  10. RELAFEN [Concomitant]
  11. FERROUS SULFATE [Concomitant]
     Dosage: 325 MG, 1-2 TIMES DAILY
  12. PROCRIT                            /00909301/ [Concomitant]
  13. METHADONE [Concomitant]
  14. ZANAFLEX [Concomitant]
     Dosage: 2 - 4 MG, PRN
  15. FLEXERIL [Concomitant]
     Dosage: 10 MG, PRN
  16. CENTRUM [Concomitant]
  17. SYNTHROID [Concomitant]
     Dosage: 0.075 MG, UNK
  18. ZOCOR ^MERCK^ [Concomitant]
     Indication: BLOOD CHOLESTEROL INCREASED
     Dosage: 40 MG, QD
  19. COZAAR [Concomitant]
     Dosage: 50 MG, UNK
  20. ERYTHROPOIETIN [Concomitant]
     Route: 058
  21. FLU ^LEDERLE^ [Concomitant]
     Dosage: 0.5 ML, UNK
     Route: 030
  22. CALCIUM W/VITAMIN D NOS [Concomitant]
  23. TYLENOL [Concomitant]
  24. EXCEDRIN [Concomitant]
  25. IMODIUM [Concomitant]
  26. BENADRYL [Concomitant]
  27. DEMEROL [Concomitant]
  28. VERSED [Concomitant]
     Route: 042
  29. CYCLOBENZAPRINE [Concomitant]

REACTIONS (80)
  - Osteonecrosis of jaw [Recovering/Resolving]
  - Pain [Unknown]
  - Bone loss [Unknown]
  - X-ray dental [Unknown]
  - Anxiety [Unknown]
  - Osteomyelitis [Unknown]
  - Dental fistula [Unknown]
  - Mouth ulceration [Unknown]
  - Oropharyngeal pain [Unknown]
  - Tooth erosion [Unknown]
  - Bone disorder [Recovered/Resolved]
  - Stomatitis [Unknown]
  - Haemangioma of bone [Unknown]
  - Blood calcium increased [Unknown]
  - Oropharyngeal plaque [Unknown]
  - Haemoglobin decreased [Unknown]
  - Calcium ionised increased [Unknown]
  - Periodontitis [Unknown]
  - Dental caries [Unknown]
  - Dermatitis allergic [Unknown]
  - Bone scan abnormal [Unknown]
  - Neuritis [Unknown]
  - Neck pain [Unknown]
  - Sciatica [Unknown]
  - Spinal disorder [Unknown]
  - Rectal haemorrhage [Unknown]
  - Large intestine polyp [Unknown]
  - Haemorrhoids [Unknown]
  - Haematuria [Unknown]
  - Back pain [Unknown]
  - Urinary tract infection [Unknown]
  - Headache [Unknown]
  - Exostosis [Unknown]
  - Vitamin D deficiency [Unknown]
  - Night sweats [Unknown]
  - Visual impairment [Unknown]
  - Sinus disorder [Unknown]
  - Dysphonia [Unknown]
  - Dysphagia [Unknown]
  - Hypoaesthesia [Unknown]
  - Chest pain [Unknown]
  - Haematochezia [Unknown]
  - Radiculopathy [Unknown]
  - Pain in extremity [Unknown]
  - Pollakiuria [Unknown]
  - Painful respiration [Unknown]
  - Cough [Unknown]
  - Dyspnoea [Unknown]
  - Insomnia [Unknown]
  - Nausea [Unknown]
  - Vomiting [Unknown]
  - Temperature intolerance [Unknown]
  - Muscle spasms [Unknown]
  - Migraine [Unknown]
  - Laryngitis [Unknown]
  - Change of bowel habit [Unknown]
  - Constipation [Unknown]
  - Facet joint syndrome [Unknown]
  - Intervertebral disc degeneration [Unknown]
  - Vision blurred [Unknown]
  - Neuropathy peripheral [Unknown]
  - Cataract [Unknown]
  - Left ventricular hypertrophy [Unknown]
  - Bundle branch block left [Unknown]
  - Electrocardiogram repolarisation abnormality [Unknown]
  - Intervertebral disc space narrowing [Unknown]
  - Bone marrow oedema [Unknown]
  - Musculoskeletal pain [Unknown]
  - Cutis laxa [Unknown]
  - Faecal incontinence [Unknown]
  - Spinal osteoarthritis [Unknown]
  - Osteoarthritis [Unknown]
  - Paranasal sinus discomfort [Unknown]
  - Autoimmune thyroiditis [Unknown]
  - Medullary thyroid cancer [Unknown]
  - Lymphadenopathy [Unknown]
  - Asthenia [Unknown]
  - Tooth abscess [Unknown]
  - Osteolysis [Unknown]
  - Haemoptysis [Unknown]
